FAERS Safety Report 10676108 (Version 1)
Quarter: 2014Q4

REPORT INFORMATION
  Report Type: Spontaneous
  Country: AU (occurrence: AU)
  Receive Date: 20141226
  Receipt Date: 20141226
  Transmission Date: 20150529
  Serious: Yes (Death)
  Sender: FDA-Public Use
  Company Number: AU-CIPLA LTD.-2014AU02751

PATIENT

DRUGS (3)
  1. PEMETREXED [Suspect]
     Active Substance: PEMETREXED
     Indication: LUNG NEOPLASM MALIGNANT
     Dosage: 500 MG PER SQUARE METER OF BODY SURFACE AREA, EVERY 3 WEEKS FOR UP TO SIX CYCLES
  2. CARBOPLATIN. [Suspect]
     Active Substance: CARBOPLATIN
     Indication: LUNG NEOPLASM MALIGNANT
     Dosage: TARGET AREA UNDER THE CURVE OF 5 TO 6 MG PER MILLILITER PER MINUTE EVERY 3 WEEKS FOR UP TO SIX CYCLE
  3. CISPLATIN. [Suspect]
     Active Substance: CISPLATIN
     Indication: LUNG NEOPLASM MALIGNANT
     Dosage: 75 MG PER SQUARE METER, EVERY 3 WEEKS FOR UP TO SIX CYCLES

REACTIONS (1)
  - Disease progression [Fatal]
